FAERS Safety Report 16024305 (Version 1)
Quarter: 2019Q1

REPORT INFORMATION
  Report Type: Spontaneous
  Country: US (occurrence: US)
  Receive Date: 20190301
  Receipt Date: 20190301
  Transmission Date: 20190418
  Serious: Yes (Other)
  Sender: FDA-Public Use
  Company Number: US-SUNOVION-2019SUN000693

PATIENT
  Sex: Male

DRUGS (4)
  1. LATUDA [Suspect]
     Active Substance: LURASIDONE HYDROCHLORIDE
     Indication: PRODUCT USED FOR UNKNOWN INDICATION
     Dosage: 20 MG
     Route: 048
  2. LATUDA [Suspect]
     Active Substance: LURASIDONE HYDROCHLORIDE
     Dosage: 80 MG
     Route: 048
  3. LATUDA [Suspect]
     Active Substance: LURASIDONE HYDROCHLORIDE
     Dosage: 60 MG
     Route: 048
  4. LATUDA [Suspect]
     Active Substance: LURASIDONE HYDROCHLORIDE
     Dosage: 40 MG
     Route: 048

REACTIONS (12)
  - Palpitations [Unknown]
  - Post-traumatic stress disorder [Unknown]
  - Tachyphrenia [Recovered/Resolved]
  - Paranoia [Unknown]
  - Laziness [Unknown]
  - Anxiety [Unknown]
  - Schizoaffective disorder [Unknown]
  - Hypervigilance [Unknown]
  - Feeling abnormal [Recovering/Resolving]
  - Fear [Recovering/Resolving]
  - Dyskinesia [Unknown]
  - Restlessness [Recovered/Resolved]
